FAERS Safety Report 4592646-5 (Version None)
Quarter: 2005Q2

REPORT INFORMATION
  Report Type: 
  Country: None (occurrence: None)
  Receive Date: 20050228
  Receipt Date: 20040527
  Transmission Date: 20051028
  Serious: Yes (Other)
  Sender: FDA-Public Use
  Company Number: JP-SOLVAY-00304001526

PATIENT
  Age: 789 Month
  Sex: Male

DRUGS (9)
  1. RESLIN [Concomitant]
     Indication: DEPRESSION
     Dosage: DAILY DOSE: 25 MG. FREQUENCY:UNKNOWN
     Route: 048
     Dates: start: 20030820, end: 20031216
  2. DEPROMEL 25 [Suspect]
     Indication: DEPRESSION
     Dosage: DAILY DOSE: 50 MG. FREQUENCY:UNKNOWN
     Route: 048
     Dates: start: 20030820, end: 20031209
  3. DEPROMEL 25 [Suspect]
     Dosage: DAILY DOSE: 25 MILLIGRAM(S)
     Route: 048
     Dates: start: 20031210, end: 20031216
  4. SEDIEL [Suspect]
     Indication: ANXIETY
     Dosage: DAILY DOSE: 90 MG. FREQUENCY:UNKNOWN
     Route: 048
     Dates: start: 20030820, end: 20031010
  5. SEDIEL [Interacting]
     Dosage: DAILY DOSE: 90 MG. FREQUENCY:UNKNOWN
     Route: 048
     Dates: start: 20031111, end: 20031127
  6. DEPAS [Concomitant]
     Indication: INSOMNIA
     Dosage: DAILY DOSE: 1 MG. FREQUENCY:UNKNOWN
     Route: 048
     Dates: start: 20030820
  7. AMOBAN [Concomitant]
     Indication: INSOMNIA
     Dosage: DAILY DOSE: 10 MG. FREQUENCY:UNKNOWN
     Route: 048
     Dates: start: 20030820
  8. EVAMYL [Concomitant]
     Indication: INSOMNIA
     Dosage: DAILY DOSE: 1 MG. FREQUENCY:UNKNOWN
     Route: 048
     Dates: start: 20030820, end: 20031104
  9. DOGMATYL [Concomitant]
     Indication: DEPRESSION
     Dosage: DAILY DOSE: 50 MG. FREQUENCY:UNKNOWN
     Route: 048
     Dates: start: 20031104

REACTIONS (15)
  - ABDOMINAL DISCOMFORT [None]
  - ALANINE AMINOTRANSFERASE INCREASED [None]
  - BLOOD AMYLASE INCREASED [None]
  - BLOOD LACTATE DEHYDROGENASE INCREASED [None]
  - BLOOD POTASSIUM DECREASED [None]
  - BLOOD UREA DECREASED [None]
  - CIRCULATORY COLLAPSE [None]
  - DRUG INTERACTION [None]
  - FALL [None]
  - FATIGUE [None]
  - GAMMA-GLUTAMYLTRANSFERASE INCREASED [None]
  - HOT FLUSH [None]
  - PLATELET COUNT DECREASED [None]
  - SEROTONIN SYNDROME [None]
  - TREATMENT NONCOMPLIANCE [None]
